FAERS Safety Report 23704692 (Version 2)
Quarter: 2024Q2

REPORT INFORMATION
  Report Type: Spontaneous
  Country: US (occurrence: US)
  Receive Date: 20240404
  Receipt Date: 20240426
  Transmission Date: 20240716
  Serious: Yes (Hospitalization)
  Sender: FDA-Public Use
  Company Number: US-GSKCCFUS-Case-01973834_AE-109641

PATIENT

DRUGS (1)
  1. TRELEGY ELLIPTA [Suspect]
     Active Substance: FLUTICASONE FUROATE\UMECLIDINIUM BROMIDE\VILANTEROL TRIFENATATE
     Indication: Chronic obstructive pulmonary disease
     Dosage: UNK, 100/62.5/25MCG
     Route: 055

REACTIONS (6)
  - Cellulitis [Unknown]
  - Infection [Unknown]
  - Cardiac disorder [Unknown]
  - Malaise [Unknown]
  - Oxygen saturation decreased [Unknown]
  - Product dose omission issue [Unknown]
